FAERS Safety Report 5569191-3 (Version None)
Quarter: 2007Q4

REPORT INFORMATION
  Report Type: 
  Country: None (occurrence: None)
  Receive Date: 20071220
  Receipt Date: 20070827
  Transmission Date: 20080405
  Serious: No
  Sender: FDA-Public Use
  Company Number: A0676655A

PATIENT
  Age: 72 Year
  Sex: Male

DRUGS (4)
  1. AVODART [Suspect]
     Indication: BENIGN PROSTATIC HYPERPLASIA
     Dosage: .05MG PER DAY
     Route: 048
     Dates: start: 20050601, end: 20050601
  2. FLOMAX [Concomitant]
  3. EYE DROPS [Concomitant]
     Indication: GLAUCOMA
  4. VITAMIN B-12 [Concomitant]

REACTIONS (3)
  - ASTHENIA [None]
  - DYSPHAGIA [None]
  - URINE FLOW DECREASED [None]
